FAERS Safety Report 12114573 (Version 3)
Quarter: 2016Q2

REPORT INFORMATION
  Report Type: Report from Study
  Country: US (occurrence: US)
  Receive Date: 20160225
  Receipt Date: 20160602
  Transmission Date: 20160815
  Serious: Yes (Hospitalization)
  Sender: FDA-Public Use
  Company Number: US-TEVA-636578USA

PATIENT
  Age: 86 Year
  Sex: Male
  Weight: 69.01 kg

DRUGS (12)
  1. LEXAPRO [Concomitant]
     Active Substance: ESCITALOPRAM OXALATE
     Dates: start: 201406
  2. VITAMIN C [Concomitant]
     Active Substance: ASCORBIC ACID
     Dates: start: 199501
  3. TAFAMIDIS MEGLUMINE;PLACEBO (CODE NOT BROKEN) [Suspect]
     Active Substance: TAFAMIDIS MEGLUMINE
     Indication: CARDIOMYOPATHY
     Dosage: 40 MILLIGRAM DAILY;
     Route: 048
     Dates: start: 201411
  4. XARELTO [Concomitant]
     Active Substance: RIVAROXABAN
     Dates: start: 20150730
  5. AMIODARONE HCL [Concomitant]
     Active Substance: AMIODARONE HYDROCHLORIDE
     Dates: start: 20150814
  6. METOPROLOL. [Concomitant]
     Active Substance: METOPROLOL
     Dates: start: 20150814, end: 20150916
  7. VITAMIN D3 [Concomitant]
     Active Substance: CHOLECALCIFEROL
     Dates: start: 201301
  8. FISH OIL [Concomitant]
     Active Substance: FISH OIL
  9. GLUCOSAMINE [Concomitant]
     Active Substance: GLUCOSAMINE
  10. TAFAMIDIS MEGLUMINE;PLACEBO (CODE NOT BROKEN) [Suspect]
     Active Substance: TAFAMIDIS MEGLUMINE
     Indication: CARDIAC FAILURE
  11. TORASEMIDE [Suspect]
     Active Substance: TORSEMIDE
     Indication: SUPPLEMENTATION THERAPY
     Dosage: 40 MILLIGRAM DAILY;
     Route: 048
     Dates: start: 20130827, end: 20150916
  12. MAGNESIUM OXIDE. [Concomitant]
     Active Substance: MAGNESIUM OXIDE
     Dates: start: 201201

REACTIONS (2)
  - Hypotension [Recovered/Resolved]
  - Acute kidney injury [Recovered/Resolved]

NARRATIVE: CASE EVENT DATE: 20150916
